FAERS Safety Report 4518658-5 (Version None)
Quarter: 2004Q4

REPORT INFORMATION
  Report Type: 
  Country: None (occurrence: None)
  Receive Date: 20041029
  Receipt Date: 20040910
  Transmission Date: 20050328
  Serious: No
  Sender: FDA-Public Use
  Company Number: 200416978US

PATIENT
  Sex: 0

DRUGS (1)
  1. KETEK [Suspect]
     Indication: BRONCHITIS

REACTIONS (1)
  - DRUG INEFFECTIVE [None]
